FAERS Safety Report 7389430-6 (Version None)
Quarter: 2011Q2

REPORT INFORMATION
  Report Type: 
  Country: None (occurrence: None)
  Receive Date: 20110401
  Receipt Date: 20110323
  Transmission Date: 20111010
  Serious: Yes (Death, Hospitalization, Other)
  Sender: FDA-Public Use
  Company Number: FR-BRISTOL-MYERS SQUIBB COMPANY-15614688

PATIENT
  Age: 39 Year
  Sex: Female
  Weight: 57 kg

DRUGS (1)
  1. IPILIMUMAB [Suspect]
     Indication: MALIGNANT MELANOMA
     Dosage: 170MG ON 03MAR11(3RD),LOT # 0C62102.0J
     Route: 042
     Dates: start: 20110101

REACTIONS (9)
  - GENERAL PHYSICAL HEALTH DETERIORATION [None]
  - DECREASED APPETITE [None]
  - FATIGUE [None]
  - METABOLIC ACIDOSIS [None]
  - NAUSEA [None]
  - NEOPLASM MALIGNANT [None]
  - HYPOKALAEMIA [None]
  - DYSPNOEA [None]
  - HYPOMAGNESAEMIA [None]
